FAERS Safety Report 13463240 (Version 2)
Quarter: 2017Q2

REPORT INFORMATION
  Report Type: Report from Study
  Country: US (occurrence: US)
  Receive Date: 20170420
  Receipt Date: 20170531
  Transmission Date: 20170830
  Serious: No
  Sender: FDA-Public Use
  Company Number: PHEH2017US011538

PATIENT
  Sex: Female

DRUGS (1)
  1. COSENTYX [Suspect]
     Active Substance: SECUKINUMAB
     Indication: PRODUCT USED FOR UNKNOWN INDICATION
     Dosage: 150 MG, QW2 (ONCE EVERY TWO WEEKS)
     Route: 058
     Dates: start: 20170227

REACTIONS (2)
  - Injection site bruising [Unknown]
  - Inappropriate schedule of drug administration [Unknown]
